FAERS Safety Report 8430262-5 (Version None)
Quarter: 2012Q2

REPORT INFORMATION
  Report Type: 
  Country: None (occurrence: None)
  Receive Date: 20120323
  Receipt Date: 20110824
  Transmission Date: 20120825
  Serious: Yes (Other)
  Sender: FDA-Public Use
  Company Number: 163-21880-11083155

PATIENT
  Age: 87 Year
  Sex: Female
  Weight: 61.2356 kg

DRUGS (10)
  1. CHOLESTEROL MEDS (CHOLESTEROL- AND TRIGLYCERIDE REDUCERS) [Concomitant]
  2. GLIPIZIDE [Concomitant]
  3. PLAVIX [Concomitant]
  4. REVLIMID [Suspect]
     Indication: MULTIPLE MYELOMA
     Dosage: 10 MG, OD X21 DAYS, PO
     Route: 048
     Dates: start: 20110813, end: 20110820
  5. ASPIRIN [Concomitant]
  6. METFFORMIN HYDROCHLORIDE [Concomitant]
  7. CRESTOR [Concomitant]
  8. KLONOPIN [Concomitant]
  9. ATACAND [Concomitant]
  10. CARVEDILOL [Concomitant]

REACTIONS (2)
  - RASH GENERALISED [None]
  - PRURITUS [None]
